FAERS Safety Report 10178261 (Version 1)
Quarter: 2014Q2

REPORT INFORMATION
  Report Type: Spontaneous
  Country: KR (occurrence: KR)
  Receive Date: 20140519
  Receipt Date: 20140519
  Transmission Date: 20141212
  Serious: Yes (Other)
  Sender: FDA-Public Use
  Company Number: KR-BRISTOL-MYERS SQUIBB COMPANY-20744249

PATIENT
  Age: 62 Year
  Sex: Male

DRUGS (1)
  1. ELIQUIS [Suspect]
     Route: 048

REACTIONS (1)
  - Chorioretinitis [Unknown]
